FAERS Safety Report 24128156 (Version 1)
Quarter: 2024Q3

REPORT INFORMATION
  Report Type: Spontaneous
  Country: US (occurrence: None)
  Receive Date: 20240722
  Receipt Date: 20240722
  Transmission Date: 20241017
  Serious: No
  Sender: Public
  Company Number: None

PATIENT
  Age: 73 Year
  Sex: Male

DRUGS (1)
  1. FUROSCIX [Suspect]
     Active Substance: FUROSEMIDE
     Route: 058

REACTIONS (1)
  - Injection site pain [None]
